FAERS Safety Report 5244326-0 (Version None)
Quarter: 2007Q1

REPORT INFORMATION
  Report Type: 
  Country: None (occurrence: None)
  Receive Date: 20070222
  Receipt Date: 20070215
  Transmission Date: 20070707
  Serious: Yes (Death, Life-Threatening, Other)
  Sender: FDA-Public Use
  Company Number: HQWYE892123AUG06

PATIENT
  Age: 45 Year
  Sex: Male
  Weight: 51 kg

DRUGS (5)
  1. MYLOTARG [Suspect]
     Indication: ACUTE MYELOID LEUKAEMIA RECURRENT
     Route: 041
     Dates: start: 20060816, end: 20060816
  2. LASIX [Concomitant]
     Indication: PROPHYLAXIS
     Route: 042
     Dates: start: 20060717, end: 20060822
  3. SOLU-MEDROL [Concomitant]
     Indication: PROPHYLAXIS
     Route: 041
     Dates: start: 20060627, end: 20060822
  4. VANCOMYCIN HYDROCHLORIDE [Concomitant]
     Indication: PROPHYLAXIS
     Route: 041
     Dates: start: 20060709, end: 20060822
  5. FUNGUARD [Concomitant]
     Indication: PROPHYLAXIS
     Route: 041
     Dates: start: 20060703, end: 20060822

REACTIONS (2)
  - PNEUMONIA [None]
  - VENOOCCLUSIVE LIVER DISEASE [None]
